FAERS Safety Report 9978540 (Version 1)
Quarter: 2014Q1

REPORT INFORMATION
  Report Type: Report from Study
  Country: US (occurrence: US)
  Receive Date: 20140306
  Receipt Date: 20140306
  Transmission Date: 20141002
  Serious: No
  Sender: FDA-Public Use
  Company Number: US-ABBVIE-13P-163-1173436-00

PATIENT
  Age: 71 Year
  Sex: Female

DRUGS (9)
  1. HUMIRA [Suspect]
     Indication: COLITIS ULCERATIVE
     Dates: start: 20130321
  2. COLAZAL [Concomitant]
     Indication: COLITIS ULCERATIVE
  3. LEVOTHYROXINE [Concomitant]
     Indication: HYPOTHYROIDISM
     Dosage: ALTERNATIVELY DAILY
  4. LEVOTHYROXINE [Concomitant]
     Dosage: ALTERNATIVEYL DAILY
  5. LISINOPRIL HCTZ [Concomitant]
     Indication: HYPERTENSION
     Dosage: 20/12.5 MG DAILY
  6. AMLODIPINE [Concomitant]
     Indication: HYPERTENSION
  7. ZETIA [Concomitant]
     Indication: HYPERCHOLESTEROLAEMIA
     Dosage: DAILY
  8. MULTIVITAMIN [Concomitant]
     Indication: PRODUCT USED FOR UNKNOWN INDICATION
  9. CALCIUM [Concomitant]
     Indication: MINERAL SUPPLEMENTATION
     Dosage: DAILY

REACTIONS (1)
  - Inappropriate schedule of drug administration [Recovered/Resolved]
